FAERS Safety Report 14384007 (Version 2)
Quarter: 2018Q2

REPORT INFORMATION
  Report Type: Spontaneous
  Country: US (occurrence: US)
  Receive Date: 20180115
  Receipt Date: 20180606
  Transmission Date: 20180711
  Serious: No
  Sender: FDA-Public Use
  Company Number: US-PFIZER INC-2018006845

PATIENT
  Age: 57 Year
  Sex: Female
  Weight: 100.68 kg

DRUGS (18)
  1. DOCETAXEL HOSPIRA [Suspect]
     Active Substance: DOCETAXEL
     Indication: BREAST CANCER
     Dosage: 159 MG, EVERY 3 WEEKS,  2 CYCLES
     Dates: start: 20120810, end: 20120821
  2. PARAPLATIN [Concomitant]
     Active Substance: CARBOPLATIN
     Indication: BREAST CANCER
  3. LIPITOR [Concomitant]
     Active Substance: ATORVASTATIN CALCIUM
     Dosage: UNK
     Dates: start: 200501
  4. LABETALOL [Concomitant]
     Active Substance: LABETALOL\LABETALOL HYDROCHLORIDE
     Dosage: UNK
     Dates: start: 200501
  5. TRIAMTERENE AND HYDROCHLOROTHIAZIDE [Concomitant]
     Active Substance: HYDROCHLOROTHIAZIDE\TRIAMTERENE
     Dosage: UNK
     Dates: start: 200201, end: 201212
  6. ALEGRA [Concomitant]
     Dosage: UNK
     Dates: start: 200901, end: 201208
  7. COMPAZINE /00013302/ [Concomitant]
     Active Substance: PROCHLORPERAZINE EDISYLATE
  8. LASIX [Concomitant]
     Active Substance: FUROSEMIDE
     Dosage: UNK
     Dates: start: 201301
  9. TAXOL [Concomitant]
     Active Substance: PACLITAXEL
     Indication: BREAST CANCER
  10. PRAZOSIN. [Concomitant]
     Active Substance: PRAZOSIN
     Dosage: UNK
     Dates: start: 200501, end: 201312
  11. NASONEX [Concomitant]
     Active Substance: MOMETASONE FUROATE
     Dosage: UNK
     Dates: start: 200901, end: 201208
  12. DEXAMETHASONE. [Concomitant]
     Active Substance: DEXAMETHASONE
  13. COMPAZINE /00013302/ [Concomitant]
     Active Substance: PROCHLORPERAZINE EDISYLATE
  14. ZOFRAN [Concomitant]
     Active Substance: ONDANSETRON HYDROCHLORIDE
  15. CIPRO [Concomitant]
     Active Substance: CIPROFLOXACIN HYDROCHLORIDE
  16. EMEND [Concomitant]
     Active Substance: APREPITANT
  17. AUGMENTIN [Concomitant]
     Active Substance: AMOXICILLIN\CLAVULANATE POTASSIUM
  18. NEURONTIN [Concomitant]
     Active Substance: GABAPENTIN

REACTIONS (5)
  - Hair disorder [Not Recovered/Not Resolved]
  - Madarosis [Not Recovered/Not Resolved]
  - Alopecia [Not Recovered/Not Resolved]
  - Hair colour changes [Not Recovered/Not Resolved]
  - Hair texture abnormal [Not Recovered/Not Resolved]

NARRATIVE: CASE EVENT DATE: 201305
